FAERS Safety Report 8978165 (Version 2)
Quarter: 2013Q2

REPORT INFORMATION
  Report Type: Spontaneous
  Country: US (occurrence: US)
  Receive Date: 20121221
  Receipt Date: 20130528
  Transmission Date: 20140414
  Serious: Yes (Hospitalization)
  Sender: FDA-Public Use
  Company Number: US-BAYER-2012-132932

PATIENT
  Age: 20 Year
  Sex: Female
  Weight: 52.15 kg

DRUGS (6)
  1. YASMIN [Suspect]
     Indication: ACNE
     Dosage: UNK
     Dates: start: 2006, end: 2008
  2. ALBUTEROL [Concomitant]
  3. AUGMENTIN [Concomitant]
     Dosage: 875 MG, UNK
  4. ACETAMINOPHEN [Concomitant]
     Dosage: PRN
  5. BUTALBITAL [Concomitant]
     Dosage: PRN
  6. CAFFEINE [Concomitant]
     Dosage: PRN

REACTIONS (4)
  - Pulmonary embolism [Recovered/Resolved]
  - Injury [Recovered/Resolved]
  - Pain [None]
  - Pain [Recovered/Resolved]
